FAERS Safety Report 8508669-7 (Version None)
Quarter: 2012Q3

REPORT INFORMATION
  Report Type: 
  Country: None (occurrence: None)
  Receive Date: 20120713
  Receipt Date: 20120709
  Transmission Date: 20120928
  Serious: Yes (Other)
  Sender: FDA-Public Use
  Company Number: FR-PFIZER INC-2012163469

PATIENT
  Age: 49 Year
  Sex: Male

DRUGS (4)
  1. EFFEXOR [Suspect]
     Indication: ANXIETY
  2. EFFEXOR [Suspect]
     Indication: DEPRESSION
     Dosage: 75 MG, 1X/DAY
     Route: 048
     Dates: start: 20111001
  3. BACLOFEN [Suspect]
     Indication: ALCOHOLISM
     Dosage: UNK
     Route: 048
     Dates: start: 20110401
  4. THERALENE [Suspect]
     Indication: INSOMNIA
     Dosage: UNK
     Route: 048
     Dates: start: 20110401

REACTIONS (4)
  - SOMNOLENCE [None]
  - BURNS SECOND DEGREE [None]
  - FALL [None]
  - ALCOHOL USE [None]
